FAERS Safety Report 23764725 (Version 1)
Quarter: 2024Q2

REPORT INFORMATION
  Report Type: Spontaneous
  Country: CA (occurrence: CA)
  Receive Date: 20240420
  Receipt Date: 20240420
  Transmission Date: 20240715
  Serious: Yes (Hospitalization)
  Sender: FDA-Public Use
  Company Number: CA-TEVA-VS-3183332

PATIENT
  Age: 68 Year
  Sex: Female

DRUGS (9)
  1. ETOPOSIDE [Suspect]
     Active Substance: ETOPOSIDE
     Indication: Neuroendocrine tumour
     Dosage: TIME INTERVAL: CYCLICAL
     Route: 042
  2. METOCLOPRAMIDE [Concomitant]
     Active Substance: METOCLOPRAMIDE
     Dosage: DOSE FORM: NOT SPECIFIED
  3. PANTOPRAZOLE [Concomitant]
     Active Substance: PANTOPRAZOLE
     Dosage: DOSE FORM:POWDER FOR SOLUTION INTRAVENOUS
  4. POLYETHYLENE GLYCOL [Concomitant]
     Active Substance: POLYETHYLENE GLYCOL
     Dosage: DOSE FORM: NOT SPECIFIED
  5. CARBOPLATIN [Suspect]
     Active Substance: CARBOPLATIN
     Indication: Neuroendocrine tumour
     Dosage: TIME INTERVAL: CYCLICAL: CARBOPLATIN INJECTION BP/ DOSAGE FORM: SOLUTION INTRAVENOUS
     Route: 042
  6. ASPIRIN [Concomitant]
     Active Substance: ASPIRIN
  7. HYDROMORPHONE [Concomitant]
     Active Substance: HYDROMORPHONE
     Dosage: DOSE FORM: NOT SPECIFIED
  8. MAGNESIUM [Concomitant]
     Active Substance: MAGNESIUM
     Dosage: DOSE FORM: NOT SPECIFIED
  9. METFORMIN [Concomitant]
     Active Substance: METFORMIN HYDROCHLORIDE

REACTIONS (3)
  - Febrile neutropenia [Recovering/Resolving]
  - Pancytopenia [Recovering/Resolving]
  - Transfusion [Recovering/Resolving]
